FAERS Safety Report 25273702 (Version 2)
Quarter: 2025Q3

REPORT INFORMATION
  Report Type: Spontaneous
  Country: US (occurrence: US)
  Receive Date: 20250506
  Receipt Date: 20250819
  Transmission Date: 20251020
  Serious: No
  Sender: MARIUS PHARMACEUTICALS
  Company Number: US-MARIUS PHARMACEUTICALS, LLC-2025US001805

PATIENT

DRUGS (3)
  1. KYZATREX [Suspect]
     Active Substance: TESTOSTERONE UNDECANOATE
     Indication: Blood testosterone decreased
     Dosage: 200 MG, BID
     Route: 048
     Dates: start: 202412, end: 2024
  2. KYZATREX [Suspect]
     Active Substance: TESTOSTERONE UNDECANOATE
     Dosage: 400 MG, BID
     Route: 048
     Dates: start: 2025, end: 20250404
  3. PROTONIX [Concomitant]
     Active Substance: PANTOPRAZOLE SODIUM
     Dosage: 40 MG, DAILY

REACTIONS (1)
  - Blood testosterone decreased [Unknown]

NARRATIVE: CASE EVENT DATE: 20250101
